FAERS Safety Report 5030307-9 (Version None)
Quarter: 2006Q2

REPORT INFORMATION
  Report Type: 
  Country: None (occurrence: None)
  Receive Date: 20060614
  Receipt Date: 20060601
  Transmission Date: 20061013
  Serious: Yes (Hospitalization, Other)
  Sender: FDA-Public Use
  Company Number: 2004079254

PATIENT
  Age: 28 Year
  Sex: Female

DRUGS (35)
  1. GEODON [Suspect]
     Indication: AFFECTIVE DISORDER
     Dosage: 240 MG (120 MG, 2 IN 1 D), ORAL
     Route: 048
     Dates: start: 20010430, end: 20031012
  2. GEODON [Suspect]
     Indication: PSYCHOTIC DISORDER
     Dosage: 240 MG (120 MG, 2 IN 1 D), ORAL
     Route: 048
     Dates: start: 20010430, end: 20031012
  3. GEODON [Suspect]
     Indication: SELF INJURIOUS BEHAVIOUR
     Dosage: 240 MG (120 MG, 2 IN 1 D), ORAL
     Route: 048
     Dates: start: 20010430, end: 20031012
  4. FLUCONAZOLE [Suspect]
     Indication: CANDIDIASIS
     Dosage: 100 MG (1 IN 1 D), ORAL
     Route: 048
     Dates: start: 20031001, end: 20031013
  5. LITHOBID [Suspect]
     Indication: PSYCHOTIC DISORDER
     Dosage: 1200 MG (600 MG, 2 IN 1 D), ORAL
     Route: 048
     Dates: start: 20010101
  6. LITHOBID [Suspect]
     Indication: SELF INJURIOUS BEHAVIOUR
     Dosage: 1200 MG (600 MG, 2 IN 1 D), ORAL
     Route: 048
     Dates: start: 20010101
  7. TOPIRAMATE [Suspect]
     Indication: ILL-DEFINED DISORDER
     Dosage: 100 MG, 1 IN 1 D, ORAL
     Route: 048
     Dates: start: 20010101
  8. CLARITIN [Suspect]
     Indication: ILL-DEFINED DISORDER
     Dosage: 10 MG, 1 IN 1 D, ORAL
     Route: 048
     Dates: start: 20010101
  9. CIPROFLOXACIN [Concomitant]
  10. LEXAPRO [Concomitant]
  11. PREDNISONE [Concomitant]
  12. VANCOMYCIN [Concomitant]
  13. ACETAMINOPHEN [Concomitant]
  14. HEPARIN [Concomitant]
  15. EXCEDRIN /BRA/ (CAFFEINE, PARACETAMOL) [Concomitant]
  16. ACETYLSALICYLIC ACID SRT [Concomitant]
  17. PROTONIX [Concomitant]
  18. PREVACID [Concomitant]
  19. ALL OTHER THERAPEUTIC PRODUCTS [Concomitant]
  20. KLONOPIN [Concomitant]
  21. ZYPREXA [Concomitant]
  22. KEPPRA [Concomitant]
  23. TRAZODONE HCL [Concomitant]
  24. METOPROLOL TARTRATE [Concomitant]
  25. SYNTHROID [Concomitant]
  26. DIFLUCAN [Concomitant]
  27. LACTAID (TILACTASE) [Concomitant]
  28. PROZAC [Concomitant]
  29. FERROUS SULFATE TAB [Concomitant]
  30. CLONAZEPAM [Concomitant]
  31. SIMETHICONE [Concomitant]
  32. NALTREXONE [Concomitant]
  33. ABILIFY [Concomitant]
  34. PLAQUENIL [Concomitant]
  35. FIORICET [Concomitant]

REACTIONS (55)
  - ABDOMINAL TENDERNESS [None]
  - AGGRESSION [None]
  - AGITATION [None]
  - ALANINE AMINOTRANSFERASE INCREASED [None]
  - ANAEMIA [None]
  - ANXIETY [None]
  - ASPARTATE AMINOTRANSFERASE INCREASED [None]
  - BACTERAEMIA [None]
  - BLOOD ALKALINE PHOSPHATASE INCREASED [None]
  - BLOOD BILIRUBIN INCREASED [None]
  - BLOOD CREATINE PHOSPHOKINASE INCREASED [None]
  - BLOOD KETONE BODY [None]
  - BLOOD MAGNESIUM DECREASED [None]
  - BLOOD MAGNESIUM INCREASED [None]
  - BLOOD SODIUM DECREASED [None]
  - CANDIDIASIS [None]
  - CARDIAC MURMUR [None]
  - CARDIOMEGALY [None]
  - CATHETER RELATED INFECTION [None]
  - CHEST PAIN [None]
  - CHOLELITHIASIS [None]
  - CONFUSIONAL STATE [None]
  - CONTUSION [None]
  - DECREASED APPETITE [None]
  - DELIRIUM [None]
  - DIALYSIS [None]
  - DISTURBANCE IN ATTENTION [None]
  - DRUG INEFFECTIVE [None]
  - DRUG INTERACTION [None]
  - ECCHYMOSIS [None]
  - ELECTROCARDIOGRAM QT CORRECTED INTERVAL PROLONGED [None]
  - ELECTROCARDIOGRAM ST-T SEGMENT ABNORMAL [None]
  - ELECTROCARDIOGRAM T WAVE BIPHASIC [None]
  - HEPARIN-INDUCED THROMBOCYTOPENIA [None]
  - HYPOKALAEMIA [None]
  - HYPOTENSION [None]
  - LUPUS NEPHRITIS [None]
  - MIGRAINE [None]
  - MUCOSAL DRYNESS [None]
  - ORAL INTAKE REDUCED [None]
  - PAIN [None]
  - PROTHROMBIN TIME PROLONGED [None]
  - PSYCHOTIC DISORDER [None]
  - RENAL FAILURE [None]
  - SKIN STRIAE [None]
  - SOMNOLENCE [None]
  - SYSTEMIC LUPUS ERYTHEMATOSUS [None]
  - THERAPEUTIC AGENT TOXICITY [None]
  - TOOTH DISORDER [None]
  - TORSADE DE POINTES [None]
  - TREMOR [None]
  - TRICUSPID VALVE INCOMPETENCE [None]
  - URINARY TRACT INFECTION [None]
  - VENTRICULAR EXTRASYSTOLES [None]
  - VOMITING [None]
